FAERS Safety Report 9586074 (Version 1)
Quarter: 2013Q4

REPORT INFORMATION
  Report Type: Spontaneous
  Country: NL (occurrence: NL)
  Receive Date: 20131003
  Receipt Date: 20131003
  Transmission Date: 20140711
  Serious: Yes (Death)
  Sender: FDA-Public Use
  Company Number: NL-AMGEN-NLDSP2013068446

PATIENT
  Age: 80 Year
  Sex: Male

DRUGS (10)
  1. XGEVA [Suspect]
     Indication: PROPHYLAXIS
     Dosage: UNK UNK, Q4WK
     Route: 065
     Dates: start: 20130305
  2. XYLOCAINE                          /00033401/ [Concomitant]
     Dosage: 10 MG/ML, UNK
  3. LUCRIN PDS [Concomitant]
     Dosage: 30 MG, UNK
  4. KENACORT                           /00031901/ [Concomitant]
     Dosage: 40 UNK, UNK
  5. TAMSULOSIN HYDROCHLORIDE [Concomitant]
     Dosage: 0.4 MUG, UNK
  6. SIMVASTATIN [Concomitant]
     Dosage: 40 MG, UNK
  7. PERSANTIN [Concomitant]
     Dosage: 150 MG, UNK
  8. CALCI CHEW D3 [Concomitant]
     Dosage: 500MG/400IE
  9. ESOMEPRAZOL                        /01479301/ [Concomitant]
     Dosage: 20 MG, UNK
  10. PREDNISONE [Concomitant]
     Dosage: 5 MG, UNK

REACTIONS (1)
  - Death [Fatal]
